FAERS Safety Report 9318148 (Version 1)
Quarter: 2013Q2

REPORT INFORMATION
  Report Type: Spontaneous
  Country: US (occurrence: US)
  Receive Date: 20130530
  Receipt Date: 20130530
  Transmission Date: 20140414
  Serious: No
  Sender: FDA-Public Use
  Company Number: US-GLAXOSMITHKLINE-A1006476A

PATIENT
  Age: 54 Year
  Sex: Female

DRUGS (8)
  1. VENTOLIN [Suspect]
     Indication: BRONCHITIS
     Dosage: 1PUFF AS REQUIRED
     Route: 055
     Dates: start: 20121207
  2. ADVAIR [Concomitant]
  3. CRESTOR [Concomitant]
  4. XANAX [Concomitant]
  5. METFORMIN [Concomitant]
  6. GLIMEPIRIDE [Concomitant]
  7. CYMBALTA [Concomitant]
  8. GABAPENTIN [Concomitant]

REACTIONS (1)
  - Glossodynia [Recovering/Resolving]
